FAERS Safety Report 25713691 (Version 1)
Quarter: 2025Q3

REPORT INFORMATION
  Report Type: Spontaneous
  Country: US (occurrence: US)
  Receive Date: 20250822
  Receipt Date: 20250822
  Transmission Date: 20251020
  Serious: No
  Sender: AMGEN
  Company Number: US-AMGEN-USASP2025163408

PATIENT
  Sex: Female

DRUGS (1)
  1. REPATHA [Suspect]
     Active Substance: EVOLOCUMAB
     Indication: Blood cholesterol increased
     Dosage: 140 MILLIGRAM, Q2WK
     Route: 065
     Dates: start: 202506

REACTIONS (10)
  - Drug hypersensitivity [Unknown]
  - Mouth swelling [Unknown]
  - Lip swelling [Unknown]
  - Swollen tongue [Unknown]
  - Oral mucosal blistering [Unknown]
  - Dysphonia [Unknown]
  - Mastication disorder [Unknown]
  - Asthenia [Unknown]
  - Brain fog [Unknown]
  - Dizziness [Unknown]
